FAERS Safety Report 4952214-X (Version None)
Quarter: 2006Q1

REPORT INFORMATION
  Report Type: 
  Country: None (occurrence: None)
  Receive Date: 20060320
  Receipt Date: 20060302
  Transmission Date: 20060701
  Serious: Yes (Hospitalization, Other)
  Sender: FDA-Public Use
  Company Number: 2006-00486

PATIENT
  Age: 51 Year
  Sex: Male
  Weight: 95 kg

DRUGS (3)
  1. VELCADE [Suspect]
     Indication: MULTIPLE MYELOMA
     Dosage: 2.60 MG, 2/WEEK, INTRAVENOUS
     Route: 042
     Dates: start: 20041004, end: 20050301
  2. BONEFOS (CLODRONATE DISODIUM) [Concomitant]
  3. PANACOD (CODEINE PHOSPHATE, PARACETAMOL) [Concomitant]

REACTIONS (3)
  - DIARRHOEA [None]
  - ERYTHEMA MULTIFORME [None]
  - WEIGHT DECREASED [None]
